FAERS Safety Report 7568231-X (Version None)
Quarter: 2011Q2

REPORT INFORMATION
  Report Type: 
  Country: None (occurrence: None)
  Receive Date: 20110617
  Receipt Date: 20110607
  Transmission Date: 20111010
  Serious: Yes (Disabling, Other)
  Sender: FDA-Public Use
  Company Number: ACO_21694_2011

PATIENT
  Age: 63 Year
  Sex: Female
  Weight: 82.1 kg

DRUGS (9)
  1. PROVIGIL [Concomitant]
  2. BACLOFEN [Concomitant]
  3. XANAX [Concomitant]
  4. AMITRIPTYLINE HCL [Concomitant]
  5. LISINOPRIL HCTZ (HYDROCHLOROTHIAZIDE, LISINOPRIL) [Concomitant]
  6. AMPYRA [Suspect]
     Indication: GAIT DISTURBANCE
     Dosage: 10 MG, BID, ORAL 10 MG, QD, ORAL 10 MG, BID, ORAL
     Route: 048
     Dates: start: 20100730
  7. AMPYRA [Suspect]
     Indication: GAIT DISTURBANCE
     Dosage: 10 MG, BID, ORAL 10 MG, QD, ORAL 10 MG, BID, ORAL
     Route: 048
     Dates: end: 20110524
  8. IBUPROFEN [Concomitant]
  9. VITAMINS NOS (VITAMINS NOS) [Concomitant]

REACTIONS (8)
  - MULTIPLE SCLEROSIS RELAPSE [None]
  - RESPIRATORY TRACT CONGESTION [None]
  - SWELLING [None]
  - INAPPROPRIATE SCHEDULE OF DRUG ADMINISTRATION [None]
  - HYPOAESTHESIA [None]
  - ABASIA [None]
  - BRONCHITIS [None]
  - FEELING ABNORMAL [None]
